FAERS Safety Report 9739165 (Version 1)
Quarter: 2013Q4

REPORT INFORMATION
  Report Type: Spontaneous
  Country: JP (occurrence: JP)
  Receive Date: 20131209
  Receipt Date: 20131209
  Transmission Date: 20140711
  Serious: Yes (Other)
  Sender: FDA-Public Use
  Company Number: JP-ASTELLAS-2013JP013429

PATIENT
  Age: 82 Year
  Sex: Female

DRUGS (3)
  1. VESICARE [Suspect]
     Route: 048
  2. DRUGS FOR FUNCTIONAL GASTROINTESTINAL DISORDE [Concomitant]
     Route: 065
  3. VITAMINS /90003601/ [Concomitant]
     Route: 065

REACTIONS (2)
  - Constipation [Unknown]
  - Compression fracture [Unknown]
